FAERS Safety Report 6161599-0 (Version None)
Quarter: 2009Q2

REPORT INFORMATION
  Report Type: 
  Country: None (occurrence: None)
  Receive Date: 20090417
  Receipt Date: 20090417
  Transmission Date: 20091009
  Serious: Yes (Other)
  Sender: FDA-Public Use
  Company Number: None

PATIENT
  Sex: Female
  Weight: 39.0093 kg

DRUGS (1)
  1. MONOPRIL [Suspect]

REACTIONS (2)
  - ABDOMINAL DISCOMFORT [None]
  - PRODUCT SUBSTITUTION ISSUE [None]
